FAERS Safety Report 9941702 (Version 1)
Quarter: 2014Q1

REPORT INFORMATION
  Report Type: Report from Study
  Country: US (occurrence: US)
  Receive Date: 20140303
  Receipt Date: 20140303
  Transmission Date: 20141002
  Serious: No
  Sender: FDA-Public Use
  Company Number: US-ABBVIE-13P-163-1042999-00

PATIENT
  Age: 80 Year
  Sex: Female

DRUGS (5)
  1. HUMIRA [Suspect]
     Indication: PSORIASIS
  2. LOSARTAN [Concomitant]
     Indication: BLOOD PRESSURE INCREASED
  3. POTASSIUM [Concomitant]
     Indication: NUTRITIONAL SUPPLEMENTATION
     Dosage: DAILY
  4. CALCIUM [Concomitant]
     Indication: NUTRITIONAL SUPPLEMENTATION
     Dosage: DAILY
  5. VITAMIN B [Concomitant]
     Indication: NUTRITIONAL SUPPLEMENTATION
     Dosage: DAILY

REACTIONS (5)
  - Wrong technique in drug usage process [Not Recovered/Not Resolved]
  - Stress [Not Recovered/Not Resolved]
  - Device malfunction [Not Recovered/Not Resolved]
  - Incorrect dose administered [Not Recovered/Not Resolved]
  - Drug dose omission [Not Recovered/Not Resolved]
